FAERS Safety Report 24122152 (Version 2)
Quarter: 2024Q3

REPORT INFORMATION
  Report Type: Spontaneous
  Country: US (occurrence: US)
  Receive Date: 20240722
  Receipt Date: 20240820
  Transmission Date: 20241017
  Serious: Yes (Hospitalization)
  Sender: JOHNSON AND JOHNSON
  Company Number: US-JNJFOC-20240741797

PATIENT
  Age: 80 Year
  Sex: Female

DRUGS (2)
  1. DARZALEX [Suspect]
     Active Substance: DARATUMUMAB
     Indication: Plasma cell myeloma
     Route: 042
  2. FUROSEMIDE [Concomitant]
     Active Substance: FUROSEMIDE

REACTIONS (4)
  - Oedema peripheral [Not Recovered/Not Resolved]
  - Fluid retention [Unknown]
  - Respiratory disorder [Unknown]
  - Cardiac disorder [Unknown]
